FAERS Safety Report 8269770 (Version 2)
Quarter: 2015Q3

REPORT INFORMATION
  Report Type: Spontaneous
  Country: US (occurrence: US)
  Receive Date: 20111130
  Receipt Date: 20150813
  Transmission Date: 20151125
  Serious: Yes (Other)
  Sender: FDA-Public Use
  Company Number: US-ROCHE-794400

PATIENT
  Age: 42 Year
  Sex: Female
  Weight: 57.66 kg

DRUGS (2)
  1. ACCUTANE [Suspect]
     Active Substance: ISOTRETINOIN
     Indication: ACNE
     Route: 048
     Dates: start: 19950424, end: 199508
  2. ACCUTANE [Suspect]
     Active Substance: ISOTRETINOIN
     Route: 048
     Dates: start: 19951025, end: 20010327

REACTIONS (11)
  - Colitis [Unknown]
  - Crohn^s disease [Unknown]
  - Clostridium difficile colitis [Unknown]
  - Lip dry [Unknown]
  - Depression [Unknown]
  - Intestinal haemorrhage [Unknown]
  - Suicidal ideation [Unknown]
  - Inflammatory bowel disease [Unknown]
  - Gingival bleeding [Unknown]
  - Irritable bowel syndrome [Unknown]
  - Dry eye [Unknown]

NARRATIVE: CASE EVENT DATE: 20060624
